FAERS Safety Report 5907010-3 (Version None)
Quarter: 2008Q4

REPORT INFORMATION
  Report Type: 
  Country: None (occurrence: None)
  Receive Date: 20081002
  Receipt Date: 20081002
  Transmission Date: 20090506
  Serious: Yes (Hospitalization)
  Sender: FDA-Public Use
  Company Number: None

PATIENT
  Age: 56 Year
  Sex: Female

DRUGS (1)
  1. SODIUM POLYSTYRENE SULFONATE [Suspect]
     Indication: HYPERKALAEMIA
     Dosage: PO
     Route: 048
     Dates: start: 20080714, end: 20080714

REACTIONS (4)
  - CLOSTRIDIAL INFECTION [None]
  - DRUG TOXICITY [None]
  - GASTROINTESTINAL INFLAMMATION [None]
  - INTESTINAL MASS [None]
